FAERS Safety Report 14525500 (Version 1)
Quarter: 2018Q1

REPORT INFORMATION
  Report Type: Spontaneous
  Country: US (occurrence: US)
  Receive Date: 20180210
  Receipt Date: 20180210
  Transmission Date: 20180509
  Serious: Yes (Other)
  Sender: FDA-Public Use
  Company Number: None

PATIENT
  Age: 67 Year
  Sex: Male

DRUGS (1)
  1. CITALOPRAM [Suspect]
     Active Substance: CITALOPRAM HYDROBROMIDE
     Indication: MAJOR DEPRESSION
     Route: 048

REACTIONS (4)
  - Suicidal ideation [None]
  - Therapy cessation [None]
  - Disturbance in attention [None]
  - Feeling of despair [None]

NARRATIVE: CASE EVENT DATE: 20180120
